FAERS Safety Report 4656170-3 (Version None)
Quarter: 2005Q2

REPORT INFORMATION
  Report Type: 
  Country: None (occurrence: None)
  Receive Date: 20050509
  Receipt Date: 20050111
  Transmission Date: 20051028
  Serious: No
  Sender: FDA-Public Use
  Company Number: US-GLAXOSMITHKLINE-A0540271A

PATIENT
  Age: 80 Year
  Sex: Female
  Weight: 80 kg

DRUGS (6)
  1. AVANDAMET [Suspect]
     Route: 048
  2. LIPITOR [Suspect]
     Indication: DRUG USE FOR UNKNOWN INDICATION
     Route: 065
  3. NORVASC [Concomitant]
  4. CRESTOR [Concomitant]
  5. CELEBREX [Concomitant]
  6. ENALAPRIL MALEATE [Concomitant]

REACTIONS (2)
  - SWELLING FACE [None]
  - TOXIC SKIN ERUPTION [None]
